FAERS Safety Report 5955152-9 (Version None)
Quarter: 2008Q4

REPORT INFORMATION
  Report Type: 
  Country: None (occurrence: None)
  Receive Date: 20081117
  Receipt Date: 20071105
  Transmission Date: 20090506
  Serious: Yes (Hospitalization)
  Sender: FDA-Public Use
  Company Number: US-AMGEN-US240817

PATIENT
  Sex: Male

DRUGS (3)
  1. ENBREL [Suspect]
     Indication: RHEUMATOID ARTHRITIS
     Route: 058
     Dates: start: 20030401
  2. ARAVA [Concomitant]
     Dates: start: 20020101
  3. PLAQUENIL [Concomitant]
     Dates: start: 20020101

REACTIONS (1)
  - MYOCARDIAL INFARCTION [None]
